FAERS Safety Report 17944527 (Version 2)
Quarter: 2020Q3

REPORT INFORMATION
  Report Type: Spontaneous
  Country: US (occurrence: US)
  Receive Date: 20200625
  Receipt Date: 20200707
  Transmission Date: 20201103
  Serious: Yes (Other)
  Sender: FDA-Public Use
  Company Number: US-AKORN PHARMACEUTICALS-2020AKN00814

PATIENT
  Sex: Female
  Weight: 68.03 kg

DRUGS (5)
  1. HORMONAL ORAL BIRTH CONTROL PILLS [Concomitant]
     Route: 048
  2. CLONIDINE. [Concomitant]
     Active Substance: CLONIDINE
  3. DOXYCYCLINE HYCLATE. [Concomitant]
     Active Substance: DOXYCYCLINE HYCLATE
  4. MYORISAN [Suspect]
     Active Substance: ISOTRETINOIN
     Indication: ACNE
     Dosage: 30 MG, 2X/DAY
     Route: 048
     Dates: start: 20200408, end: 20200616
  5. MYORISAN [Suspect]
     Active Substance: ISOTRETINOIN
     Indication: ACNE
     Dosage: UNK
     Route: 048
     Dates: start: 20200303, end: 2020

REACTIONS (6)
  - Depression [Not Recovered/Not Resolved]
  - Drug ineffective [Recovered/Resolved]
  - Scar [Unknown]
  - Lip dry [Unknown]
  - Cough [Unknown]
  - Dry skin [Unknown]

NARRATIVE: CASE EVENT DATE: 2020
